FAERS Safety Report 8911590 (Version 5)
Quarter: 2014Q1

REPORT INFORMATION
  Report Type: Spontaneous
  Country: GB (occurrence: GB)
  Receive Date: 20121116
  Receipt Date: 20140121
  Transmission Date: 20141002
  Serious: Yes (Hospitalization, Other)
  Sender: FDA-Public Use
  Company Number: GB-PFIZER INC-GBWYE399204FEB05

PATIENT
  Age: 69 Year
  Sex: 0

DRUGS (3)
  1. IBUPROFEN [Suspect]
     Indication: ARTHRITIS
     Dosage: 400 MG, UNK
     Route: 048
     Dates: end: 20041231
  2. LISINOPRIL [Suspect]
     Indication: HYPERTENSION
     Dosage: 5 MG, UNK
     Route: 048
     Dates: end: 20041231
  3. BENDROFLUMETHIAZIDE [Concomitant]
     Indication: HYPERTENSION
     Dosage: 2.5 MG, UNK
     Route: 048
     Dates: end: 20041231

REACTIONS (2)
  - Gastrooesophageal reflux disease [Recovering/Resolving]
  - Renal failure acute [Recovering/Resolving]
